FAERS Safety Report 7272574-7 (Version None)
Quarter: 2011Q1

REPORT INFORMATION
  Report Type: 
  Country: None (occurrence: None)
  Receive Date: 20110128
  Receipt Date: 20110117
  Transmission Date: 20110831
  Serious: Yes (Life-Threatening, Other)
  Sender: FDA-Public Use
  Company Number: 1000017566

PATIENT
  Age: 36 Year
  Sex: Female
  Weight: 80 kg

DRUGS (2)
  1. ZAPAIN (CODEINE PHOSPHATE, PARACETAMOL, CODEINE PHOSPHATE HEMIHYDRATE) [Concomitant]
  2. CITALOPRAM HYDROBROMIDE [Suspect]
     Indication: DEPRESSION
     Dosage: 40 MG (40 MG, 1 IN 1 D), ORAL
     Route: 048
     Dates: start: 20100907, end: 20101104

REACTIONS (2)
  - SUICIDAL IDEATION [None]
  - OBSESSIVE THOUGHTS [None]
